FAERS Safety Report 6343346-2 (Version None)
Quarter: 2009Q3

REPORT INFORMATION
  Report Type: 
  Country: None (occurrence: None)
  Receive Date: 20090908
  Receipt Date: 20090902
  Transmission Date: 20100115
  Serious: Yes (Hospitalization)
  Sender: FDA-Public Use
  Company Number: US-ABBOTT-09P-163-0595233-00

PATIENT
  Sex: Female
  Weight: 87.622 kg

DRUGS (6)
  1. HUMIRA [Suspect]
     Indication: PSORIASIS
     Route: 058
     Dates: start: 20081201, end: 20090201
  2. HUMIRA [Suspect]
     Indication: PSORIATIC ARTHROPATHY
     Route: 058
     Dates: start: 20090714
  3. METHOTREXATE [Concomitant]
     Indication: PSORIASIS
     Dosage: UNKNOWN
  4. METHOTREXATE [Concomitant]
     Indication: PSORIATIC ARTHROPATHY
  5. NEURONTIN [Concomitant]
     Indication: FIBROMYALGIA
  6. TOPICAL CREAM [Concomitant]
     Indication: PSORIASIS
     Dosage: UNKNOWN

REACTIONS (4)
  - EXPIRED DRUG ADMINISTERED [None]
  - NEPHROLITHIASIS [None]
  - PYREXIA [None]
  - STAPHYLOCOCCAL INFECTION [None]
